FAERS Safety Report 6666182-6 (Version None)
Quarter: 2010Q1

REPORT INFORMATION
  Report Type: 
  Country: None (occurrence: None)
  Receive Date: 20100330
  Receipt Date: 20100315
  Transmission Date: 20100710
  Serious: Yes (Death, Other)
  Sender: FDA-Public Use
  Company Number: 2010US0002

PATIENT
  Age: 9 Year
  Sex: Male

DRUGS (6)
  1. ORFADIN [Suspect]
     Indication: OFF LABEL USE
     Dosage: 10 MG, 2 IN 1 D, ORAL
     Route: 048
     Dates: start: 20100108
  2. RADIOTHERAPY (RADIOTHERAPY) [Suspect]
  3. MEROPENEM [Concomitant]
  4. NEXAVAR [Concomitant]
  5. DILAUDID [Concomitant]
  6. OXYCONTIN [Concomitant]

REACTIONS (7)
  - BONE MARROW DISORDER [None]
  - DISEASE PROGRESSION [None]
  - EPISTAXIS [None]
  - MALIGNANT NEOPLASM PROGRESSION [None]
  - NEUROBLASTOMA [None]
  - OFF LABEL USE [None]
  - PANCYTOPENIA [None]
